FAERS Safety Report 5336396-6 (Version None)
Quarter: 2007Q2

REPORT INFORMATION
  Report Type: 
  Country: None (occurrence: None)
  Receive Date: 20070523
  Receipt Date: 20070514
  Transmission Date: 20071010
  Serious: No
  Sender: FDA-Public Use
  Company Number: 2007BI002513

PATIENT
  Age: 49 Year
  Sex: Female

DRUGS (7)
  1. NATALIZUMAB [Suspect]
     Indication: MULTIPLE SCLEROSIS
     Dosage: 300 MG; QW; IV
     Route: 042
     Dates: start: 20061004
  2. KLONOPIN [Concomitant]
  3. BACLOFEN [Concomitant]
  4. PROVIGIL [Concomitant]
  5. OXYCONTIN [Concomitant]
  6. ALFUZOSIN HYDROCHLORIDE [Concomitant]
  7. VESICARE [Concomitant]

REACTIONS (5)
  - BACK PAIN [None]
  - FALL [None]
  - NON-CARDIAC CHEST PAIN [None]
  - SPINAL COMPRESSION FRACTURE [None]
  - URINARY TRACT INFECTION [None]
